FAERS Safety Report 8105803-8 (Version None)
Quarter: 2012Q1

REPORT INFORMATION
  Report Type: 
  Country: None (occurrence: None)
  Receive Date: 20120201
  Receipt Date: 20120124
  Transmission Date: 20120608
  Serious: Yes (Hospitalization, Other)
  Sender: FDA-Public Use
  Company Number: US-ABBOTT-12P-163-0897566-00

PATIENT
  Age: 82 Year
  Sex: Female

DRUGS (9)
  1. HUMIRA [Suspect]
     Dates: start: 20120110, end: 20120110
  2. PARKINSON'S MEDICATIONS [Concomitant]
     Indication: PARKINSON'S DISEASE
  3. COLITIS MEDICATIONS [Concomitant]
     Indication: COLITIS
  4. IRON [Concomitant]
     Indication: PRODUCT USED FOR UNKNOWN INDICATION
  5. WATER PILLS [Concomitant]
     Indication: PRODUCT USED FOR UNKNOWN INDICATION
  6. BLOOD PRESSURE MEDICATIONS [Concomitant]
     Indication: PRODUCT USED FOR UNKNOWN INDICATION
  7. NITROGLYCERIN [Concomitant]
     Indication: PRODUCT USED FOR UNKNOWN INDICATION
  8. HUMIRA [Suspect]
     Indication: COLITIS ULCERATIVE
     Dates: start: 20111227, end: 20111227
  9. LEXAPRO [Concomitant]
     Indication: PRODUCT USED FOR UNKNOWN INDICATION

REACTIONS (6)
  - GENERAL PHYSICAL HEALTH DETERIORATION [None]
  - ABDOMINAL PAIN [None]
  - METASTATIC NEOPLASM [None]
  - OFF LABEL USE [None]
  - NEOPLASM MALIGNANT [None]
  - INTESTINAL MASS [None]
